FAERS Safety Report 17846858 (Version 2)
Quarter: 2020Q2

REPORT INFORMATION
  Report Type: Spontaneous
  Country: JP (occurrence: JP)
  Receive Date: 20200601
  Receipt Date: 20200603
  Transmission Date: 20200714
  Serious: Yes (Other)
  Sender: FDA-Public Use
  Company Number: JP-PFIZER INC-2020208673

PATIENT
  Age: 8 Decade
  Sex: Female

DRUGS (7)
  1. IBRANCE [Suspect]
     Active Substance: PALBOCICLIB
     Dosage: 125 MG, DAILY
     Route: 048
     Dates: start: 20191126, end: 20191211
  2. IRBETAN [Concomitant]
     Active Substance: IRBESARTAN
     Dosage: 1 DF (STRENGTH: 100, NO UNITS PROVIDED), 1X/DAY
     Route: 048
  3. IBRANCE [Suspect]
     Active Substance: PALBOCICLIB
     Indication: BREAST CANCER METASTATIC
     Dosage: 125 MG/DAY, CYCLIC
     Route: 048
     Dates: start: 20191001, end: 20191112
  4. RANMARK [Concomitant]
     Active Substance: DENOSUMAB
     Indication: METASTASES TO BONE
     Dosage: UNK
     Route: 058
  5. NORVASC [Concomitant]
     Active Substance: AMLODIPINE BESYLATE
     Indication: HYPERTENSION
     Dosage: 1 DF (STRENGTH: 25, UNITS NOT PROVIDED), 1X/DAY
     Route: 048
  6. IBRANCE [Suspect]
     Active Substance: PALBOCICLIB
     Dosage: 100 MG/DAY, CYCLIC 83 WEEKS-ON AND 1 WEEK-OFF REGIMEN)
     Route: 048
     Dates: start: 20200108
  7. FEMARA [Concomitant]
     Active Substance: LETROZOLE
     Indication: BREAST CANCER RECURRENT
     Dosage: UNK
     Route: 048
     Dates: start: 20191001

REACTIONS (22)
  - Rhinorrhoea [Unknown]
  - Condition aggravated [Unknown]
  - Alopecia [Recovering/Resolving]
  - Musculoskeletal stiffness [Unknown]
  - Chest pain [Unknown]
  - Nasopharyngitis [Unknown]
  - Cell marker increased [Unknown]
  - Osteonecrosis of jaw [Unknown]
  - Cough [Unknown]
  - Dyspnoea [Recovering/Resolving]
  - Blood creatinine increased [Unknown]
  - Malaise [Not Recovered/Not Resolved]
  - Toothache [Unknown]
  - Abdominal pain upper [Unknown]
  - Pain in jaw [Unknown]
  - Headache [Unknown]
  - Bone marrow failure [Unknown]
  - Dyspepsia [Unknown]
  - Fatigue [Unknown]
  - Alanine aminotransferase increased [Unknown]
  - Stomatitis [Recovering/Resolving]
  - Hyperhidrosis [Unknown]

NARRATIVE: CASE EVENT DATE: 20191030
